FAERS Safety Report 4617830-3 (Version None)
Quarter: 2005Q1

REPORT INFORMATION
  Report Type: 
  Country: None (occurrence: None)
  Receive Date: 20050324
  Receipt Date: 20050310
  Transmission Date: 20050727
  Serious: Yes (Other)
  Sender: FDA-Public Use
  Company Number: CA-GLAXOSMITHKLINE-A0549458A

PATIENT
  Age: 42 Year
  Sex: Male

DRUGS (2)
  1. PAXIL [Suspect]
     Indication: DEPRESSION
     Dosage: 1TAB PER DAY
     Route: 048
     Dates: start: 20030201, end: 20050101
  2. ALCOHOL [Suspect]
     Indication: DRUG USE FOR UNKNOWN INDICATION
     Route: 065

REACTIONS (13)
  - APATHY [None]
  - DECREASED INTEREST [None]
  - DRY SKIN [None]
  - ERECTILE DYSFUNCTION [None]
  - HYPERHIDROSIS [None]
  - HYPERSOMNIA [None]
  - HYPERTENSION [None]
  - LIBIDO DECREASED [None]
  - SELF-INJURIOUS IDEATION [None]
  - SKIN LACERATION [None]
  - SOCIAL AVOIDANT BEHAVIOUR [None]
  - SUICIDAL IDEATION [None]
  - WEIGHT INCREASED [None]
